FAERS Safety Report 9322153 (Version 1)
Quarter: 2013Q2

REPORT INFORMATION
  Report Type: Spontaneous
  Country: CO (occurrence: CO)
  Receive Date: 20130531
  Receipt Date: 20130531
  Transmission Date: 20140414
  Serious: Yes (Other)
  Sender: FDA-Public Use
  Company Number: CO-ABBOTT-13P-036-1097581-00

PATIENT
  Age: 15 Year
  Sex: Female
  Weight: 39 kg

DRUGS (1)
  1. HUMIRA [Suspect]
     Indication: RHEUMATOID ARTHRITIS
     Route: 058
     Dates: start: 20110919, end: 20121223

REACTIONS (2)
  - Arthritis [Recovering/Resolving]
  - Hip fracture [Recovering/Resolving]
